FAERS Safety Report 4678355-2 (Version None)
Quarter: 2005Q2

REPORT INFORMATION
  Report Type: 
  Country: None (occurrence: None)
  Receive Date: 20050527
  Receipt Date: 20050517
  Transmission Date: 20051028
  Serious: Yes (Hospitalization, Other)
  Sender: FDA-Public Use
  Company Number: 2005077135

PATIENT
  Age: 25 Year
  Sex: Female
  Weight: 63.5036 kg

DRUGS (2)
  1. CETIRIZINE HCL [Suspect]
     Indication: ILL-DEFINED DISORDER
     Dates: start: 20050507
  2. BENYLIN 1 (PARACETAMOL, PSEUDOEPHEDRINE, DEXTROMETHORPHAN, GUAIFENESIN [Suspect]
     Indication: NASOPHARYNGITIS
     Dosage: 5 IN 2 D
     Dates: start: 20050507, end: 20050508

REACTIONS (7)
  - CAPILLARY DISORDER [None]
  - CONTUSION [None]
  - DRY THROAT [None]
  - EPISTAXIS [None]
  - LIVER DISORDER [None]
  - NASAL DRYNESS [None]
  - PLATELET COUNT DECREASED [None]
